FAERS Safety Report 8906630 (Version 1)
Quarter: 2012Q4

REPORT INFORMATION
  Report Type: 
  Country: US (occurrence: US)
  Receive Date: 20121113
  Receipt Date: 20121113
  Transmission Date: 20130627
  Serious: Yes (Other)
  Sender: FDA-Public Use
  Company Number: US-AMGEN-USASP2012011105

PATIENT
  Sex: Female

DRUGS (9)
  1. ENBREL [Suspect]
     Indication: PRODUCT USED FOR UNKNOWN INDICATION
     Dosage: 50 mg, qwk
     Route: 058
  2. SYNTHROID [Concomitant]
     Dosage: 125 mug, UNK
  3. LISINOPRIL [Concomitant]
     Dosage: 20 mg, UNK
  4. FOLIC ACID [Concomitant]
     Dosage: 1 mg, UNK
  5. VITAMIN B12 [Concomitant]
     Dosage: 1000 mug, UNK
  6. VITAMIN D [Concomitant]
     Dosage: 50000 IU, UNK
  7. LORTAB [Concomitant]
  8. CRESTOR [Concomitant]
     Dosage: 20 mg, UNK
  9. CALCIUM 600 [Concomitant]

REACTIONS (1)
  - Malignant melanoma [Recovering/Resolving]
